FAERS Safety Report 6337288-6 (Version None)
Quarter: 2009Q3

REPORT INFORMATION
  Report Type: 
  Country: None (occurrence: None)
  Receive Date: 20090901
  Receipt Date: 20090901
  Transmission Date: 20100115
  Serious: Yes (Hospitalization)
  Sender: FDA-Public Use
  Company Number: None

PATIENT
  Sex: Male

DRUGS (3)
  1. REVLIMID [Suspect]
     Indication: PROSTATE CANCER
     Dosage: 25 MG PO QD X21 DAYS / 4WEEK CYCLES PO
     Route: 048
     Dates: start: 20080915
  2. LUPRON [Concomitant]
  3. LEXAPRO [Concomitant]

REACTIONS (3)
  - HYPERTENSION [None]
  - NEPHROLITHIASIS [None]
  - VENTRICULAR EXTRASYSTOLES [None]
